FAERS Safety Report 6161018-4 (Version None)
Quarter: 2009Q2

REPORT INFORMATION
  Report Type: 
  Country: None (occurrence: None)
  Receive Date: 20090420
  Receipt Date: 20090408
  Transmission Date: 20091009
  Serious: Yes (Other)
  Sender: FDA-Public Use
  Company Number: GB-PFIZER INC-2009195607

PATIENT

DRUGS (1)
  1. AROMASIN [Suspect]

REACTIONS (1)
  - GASTROSTOMY TUBE INSERTION [None]
